FAERS Safety Report 10261366 (Version 2)
Quarter: 2018Q3

REPORT INFORMATION
  Report Type: Spontaneous
  Country: US (occurrence: US)
  Receive Date: 20140626
  Receipt Date: 20180925
  Transmission Date: 20181010
  Serious: Yes (Hospitalization, Other)
  Sender: FDA-Public Use
  Company Number: US-LUPIN PHARMACEUTICALS INC.-2014-01118

PATIENT
  Age: 7 Year
  Sex: Female

DRUGS (2)
  1. TOPIRAMATE. [Suspect]
     Active Substance: TOPIRAMATE
     Indication: PARTIAL SEIZURES
     Dosage: 25 MG,QD,AT BEDTIME
     Route: 065
  2. CRYPTOHEPTADINE [Concomitant]
     Indication: PARTIAL SEIZURES
     Dosage: 5 ML,QD,AT BEDTIME
     Route: 065

REACTIONS (3)
  - Angle closure glaucoma [Recovered/Resolved]
  - Toxicity to various agents [Recovered/Resolved]
  - Acute myopia [Recovered/Resolved]
